FAERS Safety Report 12299602 (Version 6)
Quarter: 2016Q4

REPORT INFORMATION
  Report Type: Spontaneous
  Country: US (occurrence: US)
  Receive Date: 20160425
  Receipt Date: 20161208
  Transmission Date: 20170207
  Serious: Yes (Other)
  Sender: FDA-Public Use
  Company Number: US-PFIZER INC-2016221760

PATIENT
  Age: 75 Year
  Sex: Male
  Weight: 75 kg

DRUGS (3)
  1. BOSULIF [Suspect]
     Active Substance: BOSUTINIB MONOHYDRATE
     Dosage: 100 MG, ALTERNATE DAY, EVERY OTHER DAY) Q28 DAYS
     Route: 048
     Dates: start: 20160427
  2. BOSULIF [Suspect]
     Active Substance: BOSUTINIB MONOHYDRATE
     Indication: CHRONIC MYELOID LEUKAEMIA
     Dosage: 100 MG, DAILY
     Route: 048
     Dates: start: 20160323, end: 20160427
  3. BOSULIF [Suspect]
     Active Substance: BOSUTINIB MONOHYDRATE
     Dosage: 100 MG, ALTERNATE DAY (EVERY OTHER DAY)
     Route: 048
     Dates: start: 20160323

REACTIONS (10)
  - White blood cell count increased [Unknown]
  - Lip swelling [Recovering/Resolving]
  - Asthenia [Unknown]
  - Swelling face [Recovering/Resolving]
  - Visual acuity reduced [Unknown]
  - Dizziness [Recovering/Resolving]
  - Drug dose omission [Unknown]
  - Hyperhidrosis [Recovering/Resolving]
  - Cataract [Unknown]
  - Hypersensitivity [Recovering/Resolving]

NARRATIVE: CASE EVENT DATE: 20160413
